FAERS Safety Report 21926687 (Version 1)
Quarter: 2023Q1

REPORT INFORMATION
  Report Type: Report from Study
  Country: IT (occurrence: IT)
  Receive Date: 20230130
  Receipt Date: 20230130
  Transmission Date: 20230418
  Serious: Yes (Other)
  Sender: FDA-Public Use
  Company Number: None

PATIENT
  Age: 54 Year
  Sex: Male

DRUGS (4)
  1. IBUPROFEN [Suspect]
     Active Substance: IBUPROFEN
     Indication: Toothache
     Dosage: UNK
     Route: 065
     Dates: start: 20220603, end: 20220604
  2. AUGMENTIN [Suspect]
     Active Substance: AMOXICILLIN\CLAVULANATE POTASSIUM
     Indication: Toothache
     Dosage: UNK
     Route: 065
     Dates: start: 20220605, end: 20220607
  3. HYDROCHLOROTHIAZIDE\ZOFENOPRIL CALCIUM [Concomitant]
     Active Substance: HYDROCHLOROTHIAZIDE\ZOFENOPRIL CALCIUM
     Dosage: 30/12.5
     Route: 065
  4. ATORVASTATIN [Concomitant]
     Active Substance: ATORVASTATIN
     Dosage: 20 MILLIGRAM
     Route: 065

REACTIONS (2)
  - Lip oedema [Recovered/Resolved]
  - Oedema genital [Recovering/Resolving]

NARRATIVE: CASE EVENT DATE: 20220606
